FAERS Safety Report 6872289-0 (Version None)
Quarter: 2010Q3

REPORT INFORMATION
  Report Type: 
  Country: None (occurrence: None)
  Receive Date: 20100723
  Receipt Date: 20100713
  Transmission Date: 20110219
  Serious: Yes (Other)
  Sender: FDA-Public Use
  Company Number: TR-ABBOTT-10P-161-0656961-00

PATIENT
  Age: 43 Year
  Weight: 65 kg

DRUGS (1)
  1. HUMIRA [Suspect]
     Indication: ANKYLOSING SPONDYLITIS
     Route: 058
     Dates: end: 20100629

REACTIONS (5)
  - ASTHENIA [None]
  - FATIGUE [None]
  - JOINT STIFFNESS [None]
  - LUPUS-LIKE SYNDROME [None]
  - PHOTOSENSITIVITY REACTION [None]
